FAERS Safety Report 25842450 (Version 1)
Quarter: 2025Q3

REPORT INFORMATION
  Report Type: Spontaneous
  Country: AU (occurrence: AU)
  Receive Date: 20250924
  Receipt Date: 20250924
  Transmission Date: 20251021
  Serious: Yes (Hospitalization)
  Sender: SANDOZ
  Company Number: AU-TGA-0000847722

PATIENT
  Age: 75 Year
  Sex: Female

DRUGS (2)
  1. CLARITHROMYCIN [Suspect]
     Active Substance: CLARITHROMYCIN
     Indication: Product used for unknown indication
     Route: 065
     Dates: start: 20221201, end: 202212
  2. ENALAPRIL MALEATE\LERCANIDIPINE HYDROCHLORIDE [Suspect]
     Active Substance: ENALAPRIL MALEATE\LERCANIDIPINE HYDROCHLORIDE
     Indication: Hypertension
     Route: 065

REACTIONS (7)
  - Cardiogenic shock [Recovered/Resolved with Sequelae]
  - Chest discomfort [Unknown]
  - Muscle tightness [Unknown]
  - Dyspnoea [Unknown]
  - Chest pain [Unknown]
  - Blood pressure decreased [Unknown]
  - Troponin increased [Unknown]

NARRATIVE: CASE EVENT DATE: 20221201
